FAERS Safety Report 25122809 (Version 1)
Quarter: 2025Q1

REPORT INFORMATION
  Report Type: Spontaneous
  Country: JP (occurrence: JP)
  Receive Date: 20250326
  Receipt Date: 20250326
  Transmission Date: 20250409
  Serious: Yes (Other)
  Sender: MYLAN
  Company Number: JP-VIATRISJAPAN-2025M1023867AA

PATIENT
  Age: 76 Year
  Sex: Female

DRUGS (2)
  1. SERTRALINE HYDROCHLORIDE [Suspect]
     Active Substance: SERTRALINE HYDROCHLORIDE
     Indication: Product used for unknown indication
  2. ROSUVASTATIN [Concomitant]
     Active Substance: ROSUVASTATIN
     Indication: Dyslipidaemia

REACTIONS (2)
  - Hallucination, visual [Unknown]
  - Bradykinesia [Unknown]

NARRATIVE: CASE EVENT DATE: 20240101
